FAERS Safety Report 12351453 (Version 3)
Quarter: 2016Q3

REPORT INFORMATION
  Report Type: Spontaneous
  Country: US (occurrence: US)
  Receive Date: 20160510
  Receipt Date: 20160722
  Transmission Date: 20161109
  Serious: Yes (Hospitalization, Other)
  Sender: FDA-Public Use
  Company Number: US-PFIZER INC-2016247604

PATIENT
  Age: 80 Year
  Sex: Female
  Weight: 63.5 kg

DRUGS (25)
  1. REVATIO [Suspect]
     Active Substance: SILDENAFIL CITRATE
     Dosage: 20 MG, 2X/DAY
  2. PANTOPRAZOLE [Concomitant]
     Active Substance: PANTOPRAZOLE SODIUM
     Indication: ABDOMINAL DISCOMFORT
     Dosage: 40 MG, 1X/DAY
     Route: 048
  3. PREDNISONE. [Concomitant]
     Active Substance: PREDNISONE
     Indication: DYSPNOEA
     Dosage: 10 MG PILL 1/2 PILL EVERY OTHER DAY
     Route: 048
  4. REVATIO [Suspect]
     Active Substance: SILDENAFIL CITRATE
     Indication: PULMONARY HYPERTENSION
     Dosage: 20 MG, 3X/DAY
     Route: 048
     Dates: start: 20120803
  5. LISINOPRIL. [Concomitant]
     Active Substance: LISINOPRIL
     Dosage: 5MG TABLET, 1/2 TABLET DAILY
  6. METOPROLOL. [Concomitant]
     Active Substance: METOPROLOL
     Indication: HEART RATE
     Dosage: 50 MG, 2X/DAY, (ONE TABLET BY MOUTH IN THE MORNING AND ONE AT 2:00 IN THE AFTERNOON)
     Route: 048
  7. OXYGEN. [Concomitant]
     Active Substance: OXYGEN
     Indication: DYSPNOEA
  8. BUDESONIDE. [Concomitant]
     Active Substance: BUDESONIDE
     Indication: DYSPNOEA
     Dosage: UNK, 2X/DAY, (AT 9:00AM AND AT NIGHT)
  9. PRAVASTATIN SODIUM. [Concomitant]
     Active Substance: PRAVASTATIN SODIUM
     Indication: BLOOD CHOLESTEROL
     Dosage: 20 MG PILL 1 PILL ONCE DAILY, TAKES AT NIGHT
     Route: 048
  10. OXYGEN. [Concomitant]
     Active Substance: OXYGEN
     Indication: ATRIAL FIBRILLATION
     Dosage: 3 L, 24/7
  11. FUROSEMIDE. [Concomitant]
     Active Substance: FUROSEMIDE
     Indication: FLUID IMBALANCE
     Dosage: 100 MG, DAILY, (60MG IN THE MORNING AND 40MG IN THE AFTERNOON)
     Route: 048
  12. LEVOTHYROXINE SODIUM. [Concomitant]
     Active Substance: LEVOTHYROXINE SODIUM
     Dosage: 50 UG, DAILY
     Route: 048
  13. MAGNESIUM OXIDE. [Concomitant]
     Active Substance: MAGNESIUM OXIDE
     Indication: BLOOD MAGNESIUM DECREASED
     Dosage: 400 MG, 1X/DAY
     Dates: start: 201603
  14. NITROSTAT [Concomitant]
     Active Substance: NITROGLYCERIN
     Indication: CHEST PAIN
     Dosage: 0.4 MG, AS NEEDED
     Route: 060
  15. REVATIO [Suspect]
     Active Substance: SILDENAFIL CITRATE
     Dosage: 20 MG, 2X/DAY
  16. PRAVACHOL [Concomitant]
     Active Substance: PRAVASTATIN SODIUM
     Indication: BLOOD CHOLESTEROL
     Dosage: 20 MG, 1X/DAY, (TAKES AT NIGHT)
     Route: 048
  17. PREDNISONE. [Concomitant]
     Active Substance: PREDNISONE
     Indication: PAIN IN EXTREMITY
     Dosage: 5 MG, DAILY (10 MG PILL, 1/2 TABLETS DAILY
     Route: 048
  18. WARFARIN [Concomitant]
     Active Substance: WARFARIN
     Indication: TRANSIENT ISCHAEMIC ATTACK
     Dosage: 2.5 MG, 1X/DAY
     Route: 048
  19. DIGOXIN. [Concomitant]
     Active Substance: DIGOXIN
     Indication: CARDIAC DISORDER
     Dosage: 125MG TABLET EVERY OTHER DAY
  20. REVATIO [Suspect]
     Active Substance: SILDENAFIL CITRATE
     Dosage: 20 MG, 3X/DAY
  21. XOPENEX [Concomitant]
     Active Substance: LEVALBUTEROL HYDROCHLORIDE
     Indication: DYSPNOEA
     Dosage: 0.63 MG, AS NEEDED
  22. COUMADIN [Concomitant]
     Active Substance: WARFARIN SODIUM
     Indication: PROPHYLAXIS
     Dosage: 4 MG, DAILY
     Route: 048
  23. FOLIC ACID. [Concomitant]
     Active Substance: FOLIC ACID
     Dosage: 1 MG, 1X/DAY
     Route: 048
  24. ALLOPURINOL. [Concomitant]
     Active Substance: ALLOPURINOL
     Indication: GOUT
     Dosage: 300 MG, 1X/DAY
     Route: 048
  25. LEVOTHYROXINE SODIUM. [Concomitant]
     Active Substance: LEVOTHYROXINE SODIUM
     Indication: THYROID DISORDER
     Dosage: 88 UG, 1X/DAY
     Route: 048

REACTIONS (7)
  - Cardiac failure congestive [Unknown]
  - Tendonitis [Not Recovered/Not Resolved]
  - Poor peripheral circulation [Unknown]
  - Thrombosis [Recovered/Resolved]
  - Urinary retention [Unknown]
  - Pneumonia [Recovered/Resolved]
  - Peripheral coldness [Unknown]

NARRATIVE: CASE EVENT DATE: 20160121
